FAERS Safety Report 7790998-6 (Version None)
Quarter: 2011Q4

REPORT INFORMATION
  Report Type: 
  Country: None (occurrence: None)
  Receive Date: 20111002
  Receipt Date: 20110920
  Transmission Date: 20120403
  Serious: Yes (Hospitalization)
  Sender: FDA-Public Use
  Company Number: US-BRISTOL-MYERS SQUIBB COMPANY-16119760

PATIENT
  Age: 60 Year
  Sex: Male
  Weight: 82 kg

DRUGS (29)
  1. LEVAQUIN [Concomitant]
     Dates: start: 20110524
  2. LYSINE [Concomitant]
     Dates: start: 20110215
  3. ZOFRAN [Concomitant]
     Dates: start: 20110419
  4. POTASSIUM [Concomitant]
     Dates: start: 20110215
  5. AZELASTINE HCL [Concomitant]
     Dates: start: 20110215
  6. CLOTRIMAZOLE [Concomitant]
     Dates: start: 20110215
  7. VICODIN [Concomitant]
     Dates: start: 20110215
  8. MAGNESIUM [Concomitant]
     Dates: start: 20110215
  9. VITAMIN B-12 [Concomitant]
     Dates: start: 20110412
  10. LACTOBACILLUS [Concomitant]
     Dates: start: 20110215
  11. FLAGYL [Concomitant]
     Dates: start: 20110524
  12. FISH OIL [Concomitant]
     Dates: start: 20110215
  13. DILTIAZEM HCL [Concomitant]
     Dates: start: 20110215
  14. LEVOTHYROXINE [Concomitant]
     Dates: start: 20110215
  15. METHOCARBAMOL [Concomitant]
     Dates: start: 20110215
  16. NYSTATIN [Concomitant]
     Dates: start: 20110215
  17. FLONASE [Concomitant]
  18. LORAZEPAM [Concomitant]
     Dates: start: 20110419
  19. DEXAMETHASONE [Concomitant]
     Dates: start: 20110215
  20. NEXIUM [Concomitant]
     Dates: start: 20110215
  21. MORPHINE [Concomitant]
     Dates: start: 20110215
  22. COMPAZINE [Concomitant]
     Dates: start: 20110419
  23. CETUXIMAB [Suspect]
     Indication: HEAD AND NECK CANCER
     Dosage: 400MG/M2:19APR2011(LOADING DOSE) 250MG/M2:19APR TO ONG LAST DOSE:24MAY2011
     Route: 042
     Dates: start: 20110419, end: 20110419
  24. CARBOPLATIN [Suspect]
     Indication: HEAD AND NECK CANCER
     Dosage: 1DF:5AUC LAST DOSE:10MAY2011
     Route: 042
     Dates: start: 20110419
  25. PEMETREXED DISODIUM [Suspect]
     Indication: HEAD AND NECK CANCER
     Dosage: LAST DOSE:10MAY2011
     Route: 042
     Dates: start: 20110419
  26. APREPITANT [Concomitant]
     Dates: start: 20110419
  27. LIOTHYRONINE SODIUM [Concomitant]
     Dates: start: 20110215
  28. FLOMAX [Concomitant]
     Dates: start: 20110524
  29. COUMADIN [Concomitant]
     Dates: start: 20110215

REACTIONS (1)
  - DIVERTICULITIS [None]
